FAERS Safety Report 11972076 (Version 2)
Quarter: 2016Q1

REPORT INFORMATION
  Report Type: Other
  Country: US (occurrence: US)
  Receive Date: 20160128
  Receipt Date: 20160215
  Transmission Date: 20160526
  Serious: Yes (Other)
  Sender: FDA-Public Use
  Company Number: US-SHIRE-US201600552

PATIENT
  Age: 16 Year
  Sex: Female
  Weight: 63.49 kg

DRUGS (6)
  1. CINRYZE [Suspect]
     Active Substance: HUMAN C1-ESTERASE INHIBITOR
     Indication: HEREDITARY ANGIOEDEMA
     Dosage: 1000 UNITS, OTHER (EVERY 2 WEEKS)
     Route: 042
  2. STERILE WATER [Concomitant]
     Active Substance: WATER
     Indication: MEDICATION DILUTION
     Dosage: 5 ML, OTHER( AS DIRECTED)
     Route: 041
     Dates: start: 20151218
  3. CINRYZE [Suspect]
     Active Substance: HUMAN C1-ESTERASE INHIBITOR
     Indication: PROPHYLAXIS
     Dosage: 1000 UNITS EVERY 3 DAYS
     Route: 042
     Dates: start: 20151016
  4. FIRAZYR [Concomitant]
     Active Substance: ICATIBANT ACETATE
     Indication: HEREDITARY ANGIOEDEMA
     Dosage: 30 MG, AS REQ^D
     Route: 058
  5. SODIUM CHLORIDE. [Concomitant]
     Active Substance: SODIUM CHLORIDE
     Indication: CATHETER MANAGEMENT
     Dosage: 0.9 %, OTHER (AS DIRECTED)
     Route: 041
     Dates: start: 20151218
  6. EPIPEN [Concomitant]
     Active Substance: EPINEPHRINE
     Indication: ANAPHYLACTIC REACTION
     Dosage: 0.3 MG, AS REQ^D
     Route: 030
     Dates: start: 20151218

REACTIONS (10)
  - Oropharyngeal discomfort [Unknown]
  - Heart rate abnormal [Recovering/Resolving]
  - Pain in jaw [Unknown]
  - Inappropriate schedule of drug administration [Not Recovered/Not Resolved]
  - Infusion related reaction [Unknown]
  - Chest discomfort [Recovering/Resolving]
  - Cough [Recovering/Resolving]
  - Headache [Unknown]
  - Rash [Unknown]
  - Myalgia [Unknown]

NARRATIVE: CASE EVENT DATE: 201501
